FAERS Safety Report 14816919 (Version 1)
Quarter: 2018Q2

REPORT INFORMATION
  Report Type: Other
  Country: IT (occurrence: IT)
  Receive Date: 20180426
  Receipt Date: 20180426
  Transmission Date: 20180711
  Serious: Yes (Hospitalization)
  Sender: FDA-Public Use
  Company Number: IT-SEATTLE GENETICS-2018SGN00966

PATIENT
  Age: 36 Year
  Sex: Male

DRUGS (1)
  1. ADCETRIS [Suspect]
     Active Substance: BRENTUXIMAB VEDOTIN
     Indication: HODGKIN^S DISEASE REFRACTORY
     Dosage: 121 MG, UNK
     Route: 042
     Dates: start: 20180411, end: 20180411

REACTIONS (4)
  - Cough [Recovered/Resolved]
  - Flushing [Recovered/Resolved]
  - Aphonia [Recovered/Resolved]
  - Dyspnoea [Recovered/Resolved]

NARRATIVE: CASE EVENT DATE: 20180411
